FAERS Safety Report 8409238-X (Version None)
Quarter: 2012Q2

REPORT INFORMATION
  Report Type: 
  Country: None (occurrence: None)
  Receive Date: 20120604
  Receipt Date: 20120521
  Transmission Date: 20120825
  Serious: Yes (Hospitalization, Other)
  Sender: FDA-Public Use
  Company Number: FR-TEVA-311509ISR

PATIENT
  Sex: Female

DRUGS (7)
  1. AZILECT [Suspect]
     Indication: PARKINSON'S DISEASE
     Dosage: 1 MILLIGRAM;
     Route: 048
     Dates: start: 20110901, end: 20111102
  2. OMEPRAZOLE [Concomitant]
  3. LEVOTHYROXINE SODIUM [Concomitant]
     Route: 048
  4. ZOLOFT [Interacting]
     Indication: MAJOR DEPRESSION
     Dosage: 50 MILLIGRAM;
     Dates: start: 20110901, end: 20111001
  5. STALEVO 200 [Concomitant]
     Indication: PARKINSON'S DISEASE
     Dosage: 3 DOSAGE FORMS;
  6. ZOLOFT [Interacting]
     Dosage: 100 MILLIGRAM;
     Dates: start: 20111001, end: 20111102
  7. MANTADIX 100 [Concomitant]
     Dosage: 200 MILLIGRAM;
     Dates: start: 20110901, end: 20111108

REACTIONS (8)
  - SEROTONIN SYNDROME [None]
  - ENCEPHALOPATHY [None]
  - RHABDOMYOLYSIS [None]
  - EXTRAPYRAMIDAL DISORDER [None]
  - CONFUSIONAL STATE [None]
  - DRUG INTERACTION [None]
  - RENAL FAILURE [None]
  - DEHYDRATION [None]
